FAERS Safety Report 6077590-9 (Version None)
Quarter: 2009Q1

REPORT INFORMATION
  Report Type: 
  Country: None (occurrence: None)
  Receive Date: 20090213
  Receipt Date: 20090203
  Transmission Date: 20090719
  Serious: Yes (Hospitalization)
  Sender: FDA-Public Use
  Company Number: BE-ELI_LILLY_AND_COMPANY-BE200901003969

PATIENT
  Sex: Female
  Weight: 97 kg

DRUGS (7)
  1. BYETTA [Suspect]
     Indication: TYPE 2 DIABETES MELLITUS
     Dosage: 5 UG, 2/D
     Route: 058
     Dates: start: 20081101, end: 20081130
  2. ELTHYRONE [Concomitant]
     Indication: HYPERTHYROIDISM
     Dosage: UNK, DAILY (1/D)
     Route: 048
  3. BISOPROLOL [Concomitant]
     Indication: HYPERTENSION
     Dosage: 5 MG, DAILY (1/D)
     Route: 048
  4. ASPIRIN [Concomitant]
     Indication: PROPHYLAXIS
     Dosage: UNK, DAILY (1/D)
     Route: 048
  5. COVERSYL [Concomitant]
     Indication: HYPERTENSION
     Dosage: 10 MG, DAILY (1/D)
     Route: 048
  6. QVAR 40 [Concomitant]
     Indication: ASTHMA
     Dosage: UNK, DAILY (1/D)
     Route: 048
  7. PRAVASTATIN SODIUM [Concomitant]
     Indication: DYSLIPIDAEMIA
     Dosage: UNK, DAILY (1/D)
     Route: 048

REACTIONS (1)
  - ANGIOEDEMA [None]
